FAERS Safety Report 8936783 (Version 1)
Quarter: 2012Q4

REPORT INFORMATION
  Report Type: Report from Study
  Country: ES (occurrence: ES)
  Receive Date: 20121130
  Receipt Date: 20121130
  Transmission Date: 20130627
  Serious: Yes (Hospitalization, Other)
  Sender: FDA-Public Use
  Company Number: ES-ROCHE-1157181

PATIENT
  Age: 35 Year
  Sex: Female

DRUGS (4)
  1. MYCOPHENOLATE MOFETIL [Suspect]
     Indication: RENAL TRANSPLANT
     Route: 065
     Dates: start: 200801
  2. ANTITHYMOCYTE IMMUNOGLOBULIN [Suspect]
     Indication: RENAL TRANSPLANT
     Route: 065
     Dates: start: 200801
  3. TACROLIMUS [Suspect]
     Indication: RENAL TRANSPLANT
     Route: 065
     Dates: start: 200801
  4. AZATHIOPRINE [Concomitant]

REACTIONS (8)
  - Diarrhoea [Recovered/Resolved]
  - Gastroenteritis norovirus [Recovered/Resolved]
  - Renal impairment [Unknown]
  - Hypovolaemic shock [Unknown]
  - Whipple^s disease [Unknown]
  - General physical health deterioration [Unknown]
  - Weight decreased [Unknown]
  - Malnutrition [Unknown]
